FAERS Safety Report 22916529 (Version 7)
Quarter: 2024Q2

REPORT INFORMATION
  Report Type: Spontaneous
  Country: TW (occurrence: TW)
  Receive Date: 20230907
  Receipt Date: 20240621
  Transmission Date: 20240716
  Serious: Yes (Other)
  Sender: FDA-Public Use
  Company Number: TW-SA-SAC20230901001146

PATIENT
  Age: 60 Year
  Sex: Female

DRUGS (7)
  1. DUPIXENT [Suspect]
     Active Substance: DUPILUMAB
     Indication: Skin disorder
     Dosage: 600 MG, 1X
     Dates: start: 20191019, end: 20191019
  2. DUPIXENT [Suspect]
     Active Substance: DUPILUMAB
     Indication: Amyloidosis
     Dosage: 600 MG, Q3W
  3. DUPIXENT [Suspect]
     Active Substance: DUPILUMAB
     Indication: Dermatitis atopic
     Dosage: 300 MG
     Dates: start: 20191108, end: 20200410
  4. METHOTREXATE [Suspect]
     Active Substance: METHOTREXATE
     Dosage: 2 DF, BID
     Dates: start: 20200417
  5. LEFLUNOMIDE [Suspect]
     Active Substance: LEFLUNOMIDE
     Dosage: UNK
  6. FOLIC ACID [Suspect]
     Active Substance: FOLIC ACID
     Dosage: 5 MG, QD
     Dates: start: 20200417
  7. CELEBREX [Suspect]
     Active Substance: CELECOXIB
     Dosage: 200 MG, QD
     Dates: start: 20200417

REACTIONS (41)
  - Rheumatoid arthritis [Unknown]
  - Discomfort [Unknown]
  - Osteoarthritis [Unknown]
  - Finger deformity [Unknown]
  - Nodule [Unknown]
  - Muscular weakness [Unknown]
  - Tremor [Unknown]
  - Asthenia [Unknown]
  - Joint stiffness [Unknown]
  - Joint swelling [Unknown]
  - Dyspnoea [Unknown]
  - Hypotension [Unknown]
  - Hypoaesthesia oral [Recovering/Resolving]
  - Decreased appetite [Recovering/Resolving]
  - Diarrhoea [Recovering/Resolving]
  - Mood swings [Recovering/Resolving]
  - Anger [Recovering/Resolving]
  - Arthritis [Not Recovered/Not Resolved]
  - Joint stiffness [Not Recovered/Not Resolved]
  - Temperature intolerance [Not Recovered/Not Resolved]
  - Irritability [Recovering/Resolving]
  - Eczema [Unknown]
  - Erythema [Unknown]
  - Skin swelling [Unknown]
  - Pruritus [Unknown]
  - Scratch [Unknown]
  - Back pain [Unknown]
  - Pain in extremity [Unknown]
  - Dizziness [Unknown]
  - Insomnia [Unknown]
  - Asthma [Unknown]
  - Nausea [Unknown]
  - Vomiting [Unknown]
  - Conjunctivitis [Unknown]
  - Dry eye [Recovering/Resolving]
  - Herpes simplex [Unknown]
  - Arthralgia [Unknown]
  - Serum sickness-like reaction [Unknown]
  - Product use in unapproved indication [Unknown]
  - Incorrect dose administered [Unknown]
  - Inappropriate schedule of product administration [Unknown]

NARRATIVE: CASE EVENT DATE: 20191019
